FAERS Safety Report 9791631 (Version 2)
Quarter: 2014Q1

REPORT INFORMATION
  Report Type: Spontaneous
  Country: CH (occurrence: CH)
  Receive Date: 20140102
  Receipt Date: 20140102
  Transmission Date: 20141002
  Serious: Yes (Hospitalization)
  Sender: FDA-Public Use
  Company Number: CH-ROCHE-1299068

PATIENT
  Sex: Male
  Weight: 95 kg

DRUGS (2)
  1. MABTHERA [Suspect]
     Indication: CONNECTIVE TISSUE DISORDER
     Route: 042
     Dates: start: 20130125, end: 20130211
  2. MABTHERA [Suspect]
     Indication: SJOGREN^S SYNDROME

REACTIONS (2)
  - Toxic skin eruption [Recovering/Resolving]
  - Renal failure acute [Recovering/Resolving]
